FAERS Safety Report 26120290 (Version 1)
Quarter: 2025Q4

REPORT INFORMATION
  Report Type: Spontaneous
  Country: TR (occurrence: None)
  Receive Date: 20251204
  Receipt Date: 20251204
  Transmission Date: 20260117
  Serious: Yes (Other)
  Sender: Alvotech
  Company Number: TR-ALVOTECHPMS-2025-ALVOTECHPMS-005968

PATIENT
  Age: 58 Year
  Sex: Female

DRUGS (1)
  1. SIMLANDI [Suspect]
     Active Substance: ADALIMUMAB-RYVK
     Indication: Psoriatic arthropathy
     Dosage: EVERY 2 WEEKS FOR 5 YEARS
     Route: 058

REACTIONS (1)
  - Inflammatory bowel disease [Unknown]
